FAERS Safety Report 10906554 (Version 1)
Quarter: 2015Q1

REPORT INFORMATION
  Report Type: Report from Study
  Country: US (occurrence: US)
  Receive Date: 20150312
  Receipt Date: 20150312
  Transmission Date: 20150721
  Serious: Yes (Other)
  Sender: FDA-Public Use
  Company Number: US-AMGEN-USASL2015021908

PATIENT
  Age: 44 Year
  Sex: Female

DRUGS (2)
  1. HUMIRA [Suspect]
     Active Substance: ADALIMUMAB
     Indication: PRODUCT USED FOR UNKNOWN INDICATION
     Dosage: UNK
     Route: 065
  2. ENBREL [Suspect]
     Active Substance: ETANERCEPT
     Indication: RHEUMATOID ARTHRITIS
     Dosage: 50 MG, 2 TIMES/WK
     Route: 065
     Dates: start: 20140617

REACTIONS (9)
  - Nasopharyngitis [Recovered/Resolved]
  - Loss of consciousness [Recovered/Resolved]
  - Head injury [Recovered/Resolved]
  - Gastric infection [Recovered/Resolved]
  - Musculoskeletal disorder [Recovered/Resolved]
  - Systemic lupus erythematosus rash [Recovered/Resolved]
  - Fall [Recovered/Resolved]
  - Condition aggravated [Recovered/Resolved]
  - Concussion [Recovered/Resolved]

NARRATIVE: CASE EVENT DATE: 201412
